FAERS Safety Report 6015322-0 (Version None)
Quarter: 2008Q4

REPORT INFORMATION
  Report Type: 
  Country: None (occurrence: None)
  Receive Date: 20081222
  Receipt Date: 20081210
  Transmission Date: 20090506
  Serious: Yes (Hospitalization, Other)
  Sender: FDA-Public Use
  Company Number: US-PFIZER INC-2008089832

PATIENT
  Sex: Female

DRUGS (1)
  1. NEURONTIN [Suspect]
     Indication: MIGRAINE

REACTIONS (30)
  - ABDOMINAL PAIN [None]
  - AMNESIA [None]
  - BACK PAIN [None]
  - BRONCHITIS [None]
  - COUGH [None]
  - DEPRESSION [None]
  - DIARRHOEA [None]
  - DYSPNOEA [None]
  - FALL [None]
  - FATIGUE [None]
  - FRACTURE [None]
  - HEAD INJURY [None]
  - HYPERHIDROSIS [None]
  - INFECTION [None]
  - JUDGEMENT IMPAIRED [None]
  - MALAISE [None]
  - MOOD SWINGS [None]
  - NEUROMA [None]
  - NOCTURIA [None]
  - OFF LABEL USE [None]
  - PAIN [None]
  - PYREXIA [None]
  - SCIATICA [None]
  - SKIN FISSURES [None]
  - SUICIDAL IDEATION [None]
  - TOOTH DISORDER [None]
  - VIRAL INFECTION [None]
  - VISION BLURRED [None]
  - VISUAL IMPAIRMENT [None]
  - WEIGHT INCREASED [None]
